FAERS Safety Report 24145900 (Version 2)
Quarter: 2024Q3

REPORT INFORMATION
  Report Type: Spontaneous
  Country: IT (occurrence: IT)
  Receive Date: 20240729
  Receipt Date: 20240730
  Transmission Date: 20241017
  Serious: Yes (Other)
  Sender: AUROBINDO
  Company Number: IT-MINISAL02-995672

PATIENT
  Age: 94 Year
  Sex: Male

DRUGS (2)
  1. ALPRAZOLAM [Suspect]
     Active Substance: ALPRAZOLAM
     Indication: Product used for unknown indication
     Dosage: 20 MILLILITER
     Route: 048
     Dates: start: 20231210
  2. XANAX [Suspect]
     Active Substance: ALPRAZOLAM
     Indication: Product used for unknown indication
     Dosage: 4 MILLIGRAM
     Route: 048

REACTIONS (2)
  - Sopor [Recovered/Resolved]
  - Withdrawal syndrome [Recovering/Resolving]

NARRATIVE: CASE EVENT DATE: 20231206
